FAERS Safety Report 14653120 (Version 2)
Quarter: 2018Q2

REPORT INFORMATION
  Report Type: Spontaneous
  Country: US (occurrence: US)
  Receive Date: 20180319
  Receipt Date: 20180613
  Transmission Date: 20180711
  Serious: No
  Sender: FDA-Public Use
  Company Number: US-AUROBINDO-AUR-APU-2018-001848

PATIENT
  Sex: Female
  Weight: 68.03 kg

DRUGS (4)
  1. ATORVASTATIN [Concomitant]
     Active Substance: ATORVASTATIN
     Indication: PRODUCT USED FOR UNKNOWN INDICATION
     Dosage: UNK
     Route: 065
  2. RALOXIFENE HYDROCHLORIDE TABLETS USP 60MG [Suspect]
     Active Substance: RALOXIFENE HYDROCHLORIDE
     Indication: BREAST CANCER
     Dosage: UNK
     Route: 065
  3. RALOXIFENE HYDROCHLORIDE TABLETS USP 60MG [Suspect]
     Active Substance: RALOXIFENE HYDROCHLORIDE
     Indication: OSTEOPOROSIS
     Dosage: 01 TABLET A DAY
     Route: 065
     Dates: start: 20170918
  4. FLECAINIDE [Concomitant]
     Active Substance: FLECAINIDE
     Indication: PRODUCT USED FOR UNKNOWN INDICATION
     Dosage: UNK
     Route: 065

REACTIONS (1)
  - Product odour abnormal [Unknown]
